FAERS Safety Report 7115382-X (Version None)
Quarter: 2010Q4

REPORT INFORMATION
  Report Type: 
  Country: None (occurrence: None)
  Receive Date: 20101122
  Receipt Date: 20101111
  Transmission Date: 20110411
  Serious: Yes (Other)
  Sender: FDA-Public Use
  Company Number: JP-JNJFOC-20090805938

PATIENT
  Age: 67 Year
  Sex: Male

DRUGS (4)
  1. ITRIZOLE [Suspect]
     Indication: ILL-DEFINED DISORDER
     Route: 048
  2. ITRIZOLE [Suspect]
     Route: 048
  3. ITRIZOLE [Suspect]
     Route: 048
  4. URALYT-U [Concomitant]
     Route: 048

REACTIONS (2)
  - OEDEMA PERIPHERAL [None]
  - WEIGHT INCREASED [None]
